FAERS Safety Report 4623668-3 (Version None)
Quarter: 2005Q1

REPORT INFORMATION
  Report Type: 
  Country: None (occurrence: None)
  Receive Date: 20050331
  Receipt Date: 20050318
  Transmission Date: 20050727
  Serious: Yes (Hospitalization)
  Sender: FDA-Public Use
  Company Number: DE-JNJFOC-20050202789

PATIENT
  Sex: Female

DRUGS (5)
  1. REMICADE [Suspect]
     Route: 042
  2. REMICADE [Suspect]
     Indication: RHEUMATOID ARTHRITIS
     Route: 042
  3. METHOTREXATE [Suspect]
     Indication: DRUG USE FOR UNKNOWN INDICATION
  4. SALOFALK [Concomitant]
  5. MUTAFLOR [Concomitant]

REACTIONS (6)
  - CERVICITIS [None]
  - GASTROENTERITIS [None]
  - ONYCHOMYCOSIS [None]
  - PERITONITIS [None]
  - POST PROCEDURAL COMPLICATION [None]
  - THROAT IRRITATION [None]
